FAERS Safety Report 13227172 (Version 1)
Quarter: 2017Q1

REPORT INFORMATION
  Report Type: Spontaneous
  Country: JP (occurrence: JP)
  Receive Date: 20170213
  Receipt Date: 20170213
  Transmission Date: 20170428
  Serious: Yes (Other)
  Sender: FDA-Public Use
  Company Number: JP-SA-2017SA023088

PATIENT
  Sex: Male

DRUGS (1)
  1. JEVTANA [Suspect]
     Active Substance: CABAZITAXEL
     Route: 042

REACTIONS (1)
  - Liver function test abnormal [Recovering/Resolving]

NARRATIVE: CASE EVENT DATE: 20170202
